FAERS Safety Report 6722351-8 (Version None)
Quarter: 2010Q2

REPORT INFORMATION
  Report Type: 
  Country: None (occurrence: None)
  Receive Date: 20100512
  Receipt Date: 20100504
  Transmission Date: 20101027
  Serious: Yes (Other)
  Sender: FDA-Public Use
  Company Number: GB-ROCHE-702148

PATIENT
  Age: 79 Year
  Sex: Female

DRUGS (2)
  1. BEVACIZUMAB [Suspect]
     Route: 031
  2. ACTIVASE [Suspect]
     Route: 065

REACTIONS (1)
  - MACULAR HOLE [None]
